FAERS Safety Report 12928266 (Version 1)
Quarter: 2016Q4

REPORT INFORMATION
  Report Type: Spontaneous
  Country: US (occurrence: US)
  Receive Date: 20161110
  Receipt Date: 20161110
  Transmission Date: 20170207
  Serious: No
  Sender: FDA-Public Use
  Company Number: None

PATIENT

DRUGS (2)
  1. NALOXONE HCL [Suspect]
     Active Substance: NALOXONE HYDROCHLORIDE
     Dosage: INJECTABLE IV, IM OR SUB Q
  2. ONDANSETRON [Suspect]
     Active Substance: ONDANSETRON
     Dosage: INJECTABLE IV OR IM

REACTIONS (4)
  - Product packaging confusion [None]
  - Circumstance or information capable of leading to medication error [None]
  - Intercepted drug administration error [None]
  - Product label confusion [None]
